FAERS Safety Report 6872009-X (Version None)
Quarter: 2010Q3

REPORT INFORMATION
  Report Type: 
  Country: None (occurrence: None)
  Receive Date: 20100723
  Receipt Date: 20100714
  Transmission Date: 20110219
  Serious: Yes (Hospitalization)
  Sender: FDA-Public Use
  Company Number: JP-JNJFOC-20100607335

PATIENT
  Sex: Female
  Weight: 47 kg

DRUGS (12)
  1. GOLIMUMAB [Suspect]
     Indication: RHEUMATOID ARTHRITIS
     Route: 058
  2. GOLIMUMAB [Suspect]
     Route: 058
  3. GOLIMUMAB [Suspect]
     Route: 058
  4. CLINORIL [Concomitant]
     Indication: RHEUMATOID ARTHRITIS
     Route: 048
  5. PREDONINE [Concomitant]
     Indication: RHEUMATOID ARTHRITIS
     Route: 048
  6. ULCERLMIN [Concomitant]
     Indication: RHEUMATOID ARTHRITIS
     Route: 048
  7. ALFAROL [Concomitant]
     Indication: OSTEOPOROSIS
     Route: 048
  8. HERBESSER R [Concomitant]
     Indication: HYPERTENSION
     Route: 048
  9. CANDESARTAN CILEXETIL [Concomitant]
     Indication: HYPERTENSION
     Route: 048
  10. ACEMAIL [Concomitant]
     Indication: HYPERTENSION
     Route: 048
  11. ATELEC [Concomitant]
     Indication: HYPERTENSION
     Route: 048
  12. OFLOXACIN [Concomitant]
     Indication: CORNEAL EROSION
     Route: 003

REACTIONS (1)
  - SEPSIS [None]
